FAERS Safety Report 5215035-9 (Version None)
Quarter: 2007Q1

REPORT INFORMATION
  Report Type: 
  Country: None (occurrence: None)
  Receive Date: 20070122
  Receipt Date: 20061211
  Transmission Date: 20070707
  Serious: Yes (Death, Other)
  Sender: FDA-Public Use
  Company Number: DE-GILEAD-2006-0009788

PATIENT
  Sex: Male
  Weight: 52.2 kg

DRUGS (5)
  1. VIREAD [Suspect]
     Indication: HIV INFECTION
     Route: 048
     Dates: start: 20050307, end: 20050803
  2. VIREAD [Suspect]
     Dates: start: 20011201, end: 20020301
  3. TRUVADA [Suspect]
     Indication: HIV INFECTION
     Dates: start: 20050803, end: 20060125
  4. FOSAMPRENAVIR [Concomitant]
     Route: 048
     Dates: start: 20030201, end: 20051201
  5. LAMIVUDINE [Concomitant]
     Route: 048
     Dates: start: 20020401

REACTIONS (4)
  - COMA HEPATIC [None]
  - FANCONI SYNDROME ACQUIRED [None]
  - GLYCOSURIA [None]
  - PROTEINURIA [None]
